FAERS Safety Report 22121264 (Version 2)
Quarter: 2024Q3

REPORT INFORMATION
  Report Type: Spontaneous
  Country: NZ (occurrence: NZ)
  Receive Date: 20230321
  Receipt Date: 20240909
  Transmission Date: 20241017
  Serious: Yes (Death, Congenital Anomaly, Other)
  Sender: BOEHRINGER INGELHEIM
  Company Number: NZ-BoehringerIngelheim-2023-BI-225976

PATIENT
  Sex: Female

DRUGS (2)
  1. JARDIANCE [Suspect]
     Active Substance: EMPAGLIFLOZIN
     Indication: Type 2 diabetes mellitus
     Route: 064
  2. LOSARTAN [Suspect]
     Active Substance: LOSARTAN\LOSARTAN POTASSIUM
     Indication: Product used for unknown indication
     Route: 064

REACTIONS (6)
  - Foetal heart rate abnormal [Fatal]
  - Bradycardia foetal [Fatal]
  - Potter^s syndrome [Fatal]
  - Foetal exposure during pregnancy [Fatal]
  - Foetal distress syndrome [Fatal]
  - Foetal disorder [Fatal]
